FAERS Safety Report 6053054-3 (Version None)
Quarter: 2009Q1

REPORT INFORMATION
  Report Type: 
  Country: None (occurrence: None)
  Receive Date: 20090122
  Receipt Date: 20090109
  Transmission Date: 20090719
  Serious: Yes (Other)
  Sender: FDA-Public Use
  Company Number: DSU-2008-02136

PATIENT
  Age: 74 Year
  Sex: Male
  Weight: 70.8 kg

DRUGS (8)
  1. CS-8663 (OLMESARTAN/AMLODIPINE/HYDROCHLOROTHIAZIDE) (TABLET) [Suspect]
     Indication: TYPE 2 DIABETES MELLITUS
     Dosage: 40/10/25MG (QD), PER ORAL
     Route: 048
     Dates: start: 20080725, end: 20081126
  2. HYDROCHLOROTHIAZIDE [Suspect]
     Indication: HYPERTENSION
     Dosage: 25 MG, (25 MG, QD), PER ORAL
     Route: 048
     Dates: start: 20081110, end: 20081126
  3. FLOMAX (TAMUSULOSIN HYDROCHLORIDE) (TAMSULOSIN HYDROCHLORIDE) [Concomitant]
  4. MELOXICAM [Concomitant]
  5. METFORMIN HCL [Concomitant]
  6. ACTOS [Concomitant]
  7. LOVASATATIN (LOVASATATIN) (LOVASTATIN) [Concomitant]
  8. GABAPENTIN (GABAPENTIN) (GABAPENTIN) [Concomitant]

REACTIONS (10)
  - ATRIOVENTRICULAR BLOCK FIRST DEGREE [None]
  - BLOOD PRESSURE DECREASED [None]
  - DIZZINESS [None]
  - ELECTROCARDIOGRAM Q WAVES [None]
  - FALL [None]
  - HAEMATOCRIT DECREASED [None]
  - HAEMOGLOBIN DECREASED [None]
  - LOSS OF CONSCIOUSNESS [None]
  - PRESYNCOPE [None]
  - RESPIRATORY RATE DECREASED [None]
